FAERS Safety Report 6435247-6 (Version None)
Quarter: 2009Q4

REPORT INFORMATION
  Report Type: 
  Country: None (occurrence: None)
  Receive Date: 20091110
  Receipt Date: 20091102
  Transmission Date: 20100525
  Serious: Yes (Hospitalization)
  Sender: FDA-Public Use
  Company Number: US-ELI_LILLY_AND_COMPANY-US200907002128

PATIENT
  Sex: Female
  Weight: 95.238 kg

DRUGS (12)
  1. HUMULIN 70/30 [Suspect]
     Indication: TYPE 2 DIABETES MELLITUS
     Dosage: 52 U, EACH MORNING
     Dates: end: 20090201
  2. HUMULIN 70/30 [Suspect]
     Dosage: 50 U, EACH EVENING
     Dates: end: 20090201
  3. HUMALOG [Suspect]
     Indication: TYPE 2 DIABETES MELLITUS
     Dates: start: 20090201
  4. LEVEMIR [Concomitant]
     Dates: start: 20090201
  5. AVANDIA [Concomitant]
     Dosage: 4 MG, DAILY (1/D)
  6. GLUCOPHAGE [Concomitant]
     Dosage: 5 MG, DAILY (1/D)
  7. LISINOPRIL [Concomitant]
     Dosage: 10 MG, DAILY (1/D)
  8. MAXZIDE [Concomitant]
     Dosage: UNK, DAILY (1/D)
  9. COUMADIN [Concomitant]
  10. TRIAMTERENE [Concomitant]
  11. ADVAIR DISKUS 100/50 [Concomitant]
  12. ADVICOR [Concomitant]
     Dosage: UNK, DAILY (1/D)

REACTIONS (4)
  - BLOOD GLUCOSE INCREASED [None]
  - GLYCOSYLATED HAEMOGLOBIN INCREASED [None]
  - NECROTISING FASCIITIS STREPTOCOCCAL [None]
  - SKIN GRAFT [None]
